FAERS Safety Report 14384612 (Version 1)
Quarter: 2018Q1

REPORT INFORMATION
  Report Type: Spontaneous
  Country: PT (occurrence: PT)
  Receive Date: 20180115
  Receipt Date: 20180115
  Transmission Date: 20180509
  Serious: Yes (Life-Threatening, Hospitalization)
  Sender: FDA-Public Use
  Company Number: PT-009507513-1801PRT004253

PATIENT
  Age: 66 Year
  Sex: Female

DRUGS (8)
  1. EFFICIB [Suspect]
     Active Substance: METFORMIN HYDROCHLORIDE\SITAGLIPTIN PHOSPHATE
     Indication: DIABETES MELLITUS
     Route: 048
     Dates: end: 20130210
  2. FUROSEMIDE. [Concomitant]
     Active Substance: FUROSEMIDE
  3. INIBACE [Concomitant]
     Route: 048
  4. ATACAND [Concomitant]
     Active Substance: CANDESARTAN CILEXETIL
     Route: 048
  5. PRAVASTATIN. [Concomitant]
     Active Substance: PRAVASTATIN
  6. VARFINE [Concomitant]
     Active Substance: WARFARIN SODIUM
     Route: 048
  7. LANOXIN [Concomitant]
     Active Substance: DIGOXIN
     Route: 048
  8. SINGULAIR [Concomitant]
     Active Substance: MONTELUKAST SODIUM
     Route: 048

REACTIONS (2)
  - Acute kidney injury [Unknown]
  - Acidosis [Unknown]

NARRATIVE: CASE EVENT DATE: 20130207
